FAERS Safety Report 11452198 (Version 1)
Quarter: 2015Q3

REPORT INFORMATION
  Report Type: Spontaneous
  Country: US (occurrence: None)
  Receive Date: 20150902
  Receipt Date: 20150902
  Transmission Date: 20151125
  Serious: Yes (Other)
  Sender: FDA-Public Use
  Company Number: None

PATIENT
  Age: 12 Year
  Sex: Male
  Weight: 73.94 kg

DRUGS (1)
  1. LAMOTRIGINE 100 MG [Suspect]
     Active Substance: LAMOTRIGINE
     Indication: BIPOLAR DISORDER
     Route: 048
     Dates: start: 20130529, end: 20130716

REACTIONS (3)
  - Product substitution issue [None]
  - Anger [None]
  - Aggression [None]

NARRATIVE: CASE EVENT DATE: 20130706
